FAERS Safety Report 5519450-5 (Version None)
Quarter: 2007Q4

REPORT INFORMATION
  Report Type: 
  Country: None (occurrence: None)
  Receive Date: 20071116
  Receipt Date: 20071101
  Transmission Date: 20080405
  Serious: Yes (Hospitalization)
  Sender: FDA-Public Use
  Company Number: AU-GENENTECH-246568

PATIENT
  Sex: Male

DRUGS (9)
  1. LUCENTIS [Suspect]
     Indication: RETINAL NEOVASCULARISATION
     Dosage: UNK, UNK
     Route: 031
     Dates: start: 20060710
  2. LUCENTIS [Suspect]
     Route: 031
     Dates: start: 20060904
  3. LUCENTIS [Suspect]
     Route: 031
     Dates: start: 20061020
  4. LUCENTIS [Suspect]
     Route: 031
     Dates: start: 20061127
  5. LUCENTIS [Suspect]
     Route: 031
     Dates: start: 20070111
  6. LUCENTIS [Suspect]
     Route: 031
     Dates: start: 20070309
  7. LUCENTIS [Suspect]
     Route: 031
     Dates: start: 20070420
  8. LUCENTIS [Suspect]
     Route: 031
     Dates: start: 20070601
  9. LUCENTIS [Suspect]
     Route: 031
     Dates: start: 20070712

REACTIONS (1)
  - COLLAPSE OF LUNG [None]
